FAERS Safety Report 16343330 (Version 1)
Quarter: 2019Q2

REPORT INFORMATION
  Report Type: Spontaneous
  Country: US (occurrence: US)
  Receive Date: 20190417
  Receipt Date: 20190417
  Transmission Date: 20190711
  Serious: No
  Sender: FDA-Public Use
  Company Number: None

PATIENT
  Age: 50 Year
  Sex: Female

DRUGS (3)
  1. CHOLESTYRAMINE. [Concomitant]
     Active Substance: CHOLESTYRAMINE
  2. AFINITOR [Suspect]
     Active Substance: EVEROLIMUS
     Route: 048
     Dates: start: 20180213
  3. POTASSIUM [Concomitant]
     Active Substance: POTASSIUM

REACTIONS (2)
  - Blood pressure increased [None]
  - Oedema peripheral [None]

NARRATIVE: CASE EVENT DATE: 20190327
